FAERS Safety Report 12314780 (Version 4)
Quarter: 2016Q2

REPORT INFORMATION
  Report Type: Spontaneous
  Country: US (occurrence: US)
  Receive Date: 20160428
  Receipt Date: 20160512
  Transmission Date: 20160815
  Serious: Yes (Life-Threatening, Hospitalization, Other)
  Sender: FDA-Public Use
  Company Number: US-MDT-ADR-2016-00767

PATIENT
  Age: 62 Year
  Sex: Male

DRUGS (4)
  1. COMPOUNDED BACLOFEN [Suspect]
     Active Substance: BACLOFEN
     Dosage: 450.2 MCG/DAY
     Route: 037
  2. DILAUDID [Suspect]
     Active Substance: HYDROMORPHONE HYDROCHLORIDE
     Dosage: 6.003 MG/DAY
     Route: 037
  3. BUPIVACAINE. [Suspect]
     Active Substance: BUPIVACAINE
     Dosage: 9.004 MG/DAY
     Route: 037
  4. CLONIDINE. [Suspect]
     Active Substance: CLONIDINE
     Dosage: 100.03 MCG/DAY
     Route: 037

REACTIONS (10)
  - Respiratory arrest [Fatal]
  - Feeling abnormal [Fatal]
  - Blood pressure abnormal [Fatal]
  - Death [Fatal]
  - Body temperature increased [Fatal]
  - Overdose [Fatal]
  - Seizure [Fatal]
  - Drug withdrawal syndrome [Fatal]
  - Underdose [Fatal]
  - Blood pressure increased [Fatal]

NARRATIVE: CASE EVENT DATE: 20160424
